FAERS Safety Report 7512547-X (Version None)
Quarter: 2011Q2

REPORT INFORMATION
  Report Type: 
  Country: None (occurrence: None)
  Receive Date: 20110520
  Receipt Date: 20110510
  Transmission Date: 20111010
  Serious: Yes (Other)
  Sender: FDA-Public Use
  Company Number: 2011002040

PATIENT
  Age: 79 Year
  Sex: Male

DRUGS (3)
  1. MULTI-VITAMIN [Concomitant]
  2. FLOMAX [Concomitant]
  3. ERLOTINIB HYDROCHLORIDE [Suspect]
     Indication: NON-SMALL CELL LUNG CANCER
     Dosage: 150 MG DAILY, ORAL; 100 MG QD, ORAL;
     Route: 048
     Dates: start: 20110401

REACTIONS (4)
  - LYMPHOCYTE COUNT DECREASED [None]
  - BLOOD SODIUM DECREASED [None]
  - HAEMOGLOBIN DECREASED [None]
  - FATIGUE [None]
